FAERS Safety Report 7804196-0 (Version None)
Quarter: 2011Q4

REPORT INFORMATION
  Report Type: 
  Country: None (occurrence: None)
  Receive Date: 20111010
  Receipt Date: 20111005
  Transmission Date: 20120403
  Serious: Yes (Death)
  Sender: FDA-Public Use
  Company Number: RU-ASTRAZENECA-2011SE59835

PATIENT
  Sex: Female

DRUGS (1)
  1. NAROPIN [Suspect]
     Dates: start: 20110901

REACTIONS (1)
  - DEATH [None]
